FAERS Safety Report 5673797-0 (Version None)
Quarter: 2008Q1

REPORT INFORMATION
  Report Type: 
  Country: None (occurrence: None)
  Receive Date: 20080319
  Receipt Date: 20080307
  Transmission Date: 20080703
  Serious: Yes (Other)
  Sender: FDA-Public Use
  Company Number: US-PFIZER INC-2008022504

PATIENT
  Age: 58 Year
  Sex: Female

DRUGS (3)
  1. AROMASIN [Suspect]
     Indication: BREAST CANCER
     Route: 048
  2. FEMARA [Suspect]
     Indication: BREAST CANCER
  3. VITAMIN CAP [Concomitant]

REACTIONS (1)
  - EYE INFLAMMATION [None]
